FAERS Safety Report 8183949-6 (Version None)
Quarter: 2012Q1

REPORT INFORMATION
  Report Type: 
  Country: None (occurrence: None)
  Receive Date: 20120305
  Receipt Date: 20120302
  Transmission Date: 20120608
  Serious: No
  Sender: FDA-Public Use
  Company Number: US-PFIZER INC-2012028942

PATIENT
  Sex: Male
  Weight: 68.027 kg

DRUGS (5)
  1. CARVEDILOL [Concomitant]
     Dosage: 6.25 MG, 2X/DAY
  2. RANEXA [Concomitant]
     Dosage: 1000 MG, 2X/DAY
  3. ISOSORBIDE [Concomitant]
     Dosage: 60 MG, 1X/DAY
  4. ASPIRIN [Concomitant]
     Dosage: UNK
  5. LIPITOR [Suspect]
     Indication: BLOOD CHOLESTEROL INCREASED
     Dosage: 40 MG, 1X/DAY
     Route: 048

REACTIONS (1)
  - ANXIETY [None]
